FAERS Safety Report 14400959 (Version 1)
Quarter: 2018Q1

REPORT INFORMATION
  Report Type: Spontaneous
  Country: CN (occurrence: CN)
  Receive Date: 20180117
  Receipt Date: 20180117
  Transmission Date: 20180509
  Serious: Yes (Hospitalization)
  Sender: FDA-Public Use
  Company Number: CN-ACCORD-062721

PATIENT
  Age: 57 Year
  Sex: Female

DRUGS (7)
  1. IRON [Concomitant]
     Active Substance: IRON
     Indication: IRON DEFICIENCY ANAEMIA
     Route: 048
  2. METOPROLOL. [Concomitant]
     Active Substance: METOPROLOL
     Indication: PALPITATIONS
     Route: 048
  3. CLOZAPINE. [Suspect]
     Active Substance: CLOZAPINE
     Indication: SCHIZOAFFECTIVE DISORDER
     Dosage: ALSO TAKEN 375 MG/DAY FOR THREE DAYS AND 275 MG/DAY FOR ONE DAY + DECREASED TO 200 MG/DAY
  4. SULPIRIDE [Concomitant]
     Active Substance: SULPIRIDE
     Dosage: ALSO RECEIVED 0.2 G/DAY, 0.4 G/DAY
     Route: 048
  5. POTASSIUM [Concomitant]
     Active Substance: POTASSIUM
     Indication: HYPOKALAEMIA
  6. LORAZEPAM. [Concomitant]
     Active Substance: LORAZEPAM
     Indication: INSOMNIA
     Route: 048
  7. HALOPERIDOL. [Concomitant]
     Active Substance: HALOPERIDOL
     Route: 030

REACTIONS (3)
  - Drug level increased [Unknown]
  - Dermatitis [Recovered/Resolved]
  - Drug interaction [Unknown]
